FAERS Safety Report 22386884 (Version 1)
Quarter: 2023Q2

REPORT INFORMATION
  Report Type: Spontaneous
  Country: US (occurrence: US)
  Receive Date: 20230531
  Receipt Date: 20230531
  Transmission Date: 20230721
  Serious: Yes (Hospitalization)
  Sender: FDA-Public Use
  Company Number: US-drreddys-LIT/USA/23/0165967

PATIENT
  Age: 50 Year
  Sex: Male

DRUGS (3)
  1. DIVALPROEX SODIUM [Suspect]
     Active Substance: DIVALPROEX SODIUM
     Indication: Epilepsy
  2. LEVETIRACETAM [Suspect]
     Active Substance: LEVETIRACETAM
     Indication: Epilepsy
     Dates: start: 2018
  3. TIRZEPATIDE [Suspect]
     Active Substance: TIRZEPATIDE
     Indication: Weight decreased

REACTIONS (9)
  - Hypoacusis [Unknown]
  - Petechiae [Unknown]
  - Drug interaction [Unknown]
  - Decreased appetite [Unknown]
  - Fatigue [Unknown]
  - Ataxia [Unknown]
  - Encephalopathy [Unknown]
  - Malaise [Unknown]
  - Thrombocytopenia [Unknown]
